FAERS Safety Report 16193276 (Version 1)
Quarter: 2019Q2

REPORT INFORMATION
  Report Type: Spontaneous
  Country: GB (occurrence: GB)
  Receive Date: 20190413
  Receipt Date: 20190413
  Transmission Date: 20190711
  Serious: Yes (Life-Threatening, Disabling)
  Sender: FDA-Public Use
  Company Number: GB-TEVA-2019-GB-1036377

PATIENT
  Age: 64 Year
  Sex: Male
  Weight: 71 kg

DRUGS (3)
  1. AMLODIPINE [Concomitant]
     Active Substance: AMLODIPINE BESYLATE
     Indication: HYPERTENSION
  2. OMEPRAZOLE. [Concomitant]
     Active Substance: OMEPRAZOLE
     Indication: ABDOMINAL DISCOMFORT
     Dates: start: 1998
  3. VENLAFAXINE [Suspect]
     Active Substance: VENLAFAXINE HYDROCHLORIDE
     Indication: GENERALISED ANXIETY DISORDER
     Dosage: 150 MILLIGRAM DAILY; IN MORNING AND ONE AT NIGHT
     Route: 048
     Dates: start: 20131115, end: 20190103

REACTIONS (7)
  - Incontinence [Unknown]
  - Tremor [Unknown]
  - Dysphoria [Unknown]
  - Withdrawal syndrome [Unknown]
  - Urinary tract infection [Unknown]
  - Suicidal behaviour [Recovering/Resolving]
  - Anxiety [Unknown]

NARRATIVE: CASE EVENT DATE: 2018
